FAERS Safety Report 23648937 (Version 1)
Quarter: 2024Q1

REPORT INFORMATION
  Report Type: Spontaneous
  Country: CN (occurrence: CN)
  Receive Date: 20240319
  Receipt Date: 20240319
  Transmission Date: 20240410
  Serious: Yes (Other)
  Sender: FDA-Public Use
  Company Number: CN-BAYER-2024A040891

PATIENT
  Age: 60 Year
  Sex: Male
  Weight: 58 kg

DRUGS (4)
  1. XARELTO [Suspect]
     Active Substance: RIVAROXABAN
     Indication: Femur fracture
     Dosage: 10 MG, QD
     Route: 048
     Dates: start: 20231121, end: 20231201
  2. XARELTO [Suspect]
     Active Substance: RIVAROXABAN
     Indication: Internal fixation of fracture
     Route: 048
  3. CELECOXIB [Suspect]
     Active Substance: CELECOXIB
     Indication: Femur fracture
     Dosage: 0.2 G, BID
     Route: 048
     Dates: start: 20231124, end: 20231127
  4. CELECOXIB [Suspect]
     Active Substance: CELECOXIB
     Indication: Internal fixation of fracture

REACTIONS (2)
  - Hepatic function abnormal [Recovering/Resolving]
  - Off label use [Unknown]

NARRATIVE: CASE EVENT DATE: 20231121
